FAERS Safety Report 7581069 (Version 5)
Quarter: 2013Q1

REPORT INFORMATION
  Report Type: Report from Study
  Country: AU (occurrence: AU)
  Receive Date: 20100910
  Receipt Date: 20130204
  Transmission Date: 20140127
  Serious: Yes (Hospitalization)
  Sender: FDA-Public Use
  Company Number: AU-JNJFOC-20100900697

PATIENT
  Age: 77 Year
  Sex: Male
  Weight: 59 kg

DRUGS (20)
  1. GOLIMUMAB [Suspect]
     Indication: RHEUMATOID ARTHRITIS
     Route: 042
     Dates: start: 20100806
  2. GOLIMUMAB [Suspect]
     Indication: RHEUMATOID ARTHRITIS
     Route: 042
     Dates: start: 20100708
  3. METHOTREXATE [Suspect]
     Indication: RHEUMATOID ARTHRITIS
  4. TELFAST [Concomitant]
     Indication: PROPHYLAXIS
     Route: 048
     Dates: start: 20100708, end: 20100826
  5. PARACETAMOL [Concomitant]
     Indication: ARTHRALGIA
     Route: 048
     Dates: start: 20100708, end: 20100826
  6. PARACETAMOL [Concomitant]
     Indication: ARTHRALGIA
     Route: 048
     Dates: start: 20100827
  7. PARACETAMOL [Concomitant]
     Indication: PROPHYLAXIS
     Route: 048
     Dates: start: 20100708, end: 20100826
  8. PARACETAMOL [Concomitant]
     Indication: PROPHYLAXIS
     Route: 048
     Dates: start: 20100827
  9. FOLIC ACID [Concomitant]
     Indication: PROPHYLAXIS
     Route: 048
     Dates: start: 200910
  10. PANAMAX [Concomitant]
     Indication: ARTHRALGIA
     Route: 048
     Dates: start: 1975, end: 20100826
  11. MONODUR [Concomitant]
     Indication: MYOCARDIAL ISCHAEMIA
     Route: 048
     Dates: start: 2001
  12. DILTIAZEM [Concomitant]
     Indication: MYOCARDIAL ISCHAEMIA
     Route: 048
     Dates: start: 2001, end: 20100902
  13. LOVAN [Concomitant]
     Indication: DEPRESSION
     Route: 048
     Dates: start: 1990
  14. SIMVASTATIN [Concomitant]
     Indication: HYPERCHOLESTEROLAEMIA
     Route: 048
     Dates: start: 2000
  15. FUROSEMIDE [Concomitant]
     Indication: MYOCARDIAL ISCHAEMIA
     Route: 048
     Dates: start: 2008, end: 20100831
  16. FUROSEMIDE [Concomitant]
     Indication: FLUID RETENTION
     Route: 048
     Dates: start: 2008, end: 20100831
  17. NEXIUM [Concomitant]
     Indication: GASTROOESOPHAGEAL REFLUX DISEASE
     Route: 048
     Dates: start: 2008
  18. TEMAZEPAM [Concomitant]
     Indication: INSOMNIA
     Route: 048
  19. ASPIRIN [Concomitant]
     Indication: CARDIOVASCULAR EVENT PROPHYLAXIS
     Route: 048
  20. ROXITHROMYCIN [Concomitant]
     Route: 048
     Dates: start: 20100806, end: 20100810

REACTIONS (1)
  - Interstitial lung disease [Not Recovered/Not Resolved]
